FAERS Safety Report 24985005 (Version 3)
Quarter: 2025Q2

REPORT INFORMATION
  Report Type: Report from Study
  Country: IN (occurrence: IN)
  Receive Date: 20250219
  Receipt Date: 20250528
  Transmission Date: 20250717
  Serious: Yes (Other)
  Sender: ROCHE
  Company Number: IN-ROCHE-3380696

PATIENT
  Age: 53 Year
  Sex: Female

DRUGS (2)
  1. KADCYLA [Suspect]
     Active Substance: ADO-TRASTUZUMAB EMTANSINE
     Indication: Breast cancer metastatic
     Route: 042
  2. KADCYLA [Suspect]
     Active Substance: ADO-TRASTUZUMAB EMTANSINE
     Route: 042

REACTIONS (8)
  - Hepatic function abnormal [Unknown]
  - Off label use [Unknown]
  - Hepatotoxicity [Unknown]
  - Hepatic pain [Unknown]
  - Varices oesophageal [Unknown]
  - Jaundice [Not Recovered/Not Resolved]
  - Blood bilirubin increased [Not Recovered/Not Resolved]
  - Hepatic cirrhosis [Unknown]
